FAERS Safety Report 21694115 (Version 2)
Quarter: 2022Q4

REPORT INFORMATION
  Report Type: Spontaneous
  Country: US (occurrence: US)
  Receive Date: 20221207
  Receipt Date: 20221213
  Transmission Date: 20230113
  Serious: Yes (Other)
  Sender: FDA-Public Use
  Company Number: US-BAYER-2022A167880

PATIENT
  Age: 63 Year
  Sex: Female

DRUGS (2)
  1. ASPIRIN [Interacting]
     Active Substance: ASPIRIN
     Dosage: UNK
  2. CLOPIDOGREL [Interacting]
     Active Substance: CLOPIDOGREL BISULFATE
     Dosage: UNK

REACTIONS (6)
  - Melaena [None]
  - Haemoglobin decreased [None]
  - Gastric mucosa erythema [None]
  - Gastritis erosive [None]
  - Duodenal ulcer [None]
  - Labelled drug-drug interaction medication error [None]
